FAERS Safety Report 9833961 (Version 2)
Quarter: 2014Q1

REPORT INFORMATION
  Report Type: Report from Study
  Country: US (occurrence: US)
  Receive Date: 20140122
  Receipt Date: 20140210
  Transmission Date: 20141002
  Serious: Yes (Hospitalization)
  Sender: FDA-Public Use
  Company Number: US-BRISTOL-MYERS SQUIBB COMPANY-20035028

PATIENT
  Age: 52 Year
  Sex: Male

DRUGS (16)
  1. BELATACEPT [Suspect]
     Indication: RENAL TRANSPLANT
     Route: 042
     Dates: start: 20070417
  2. GABAPENTIN [Concomitant]
     Dosage: 1DF: 300MG AM AND 600MG PM
  3. HYDROCHLOROTHIAZIDE [Concomitant]
     Route: 048
  4. LOPRESSOR [Concomitant]
     Dosage: ER
     Route: 048
  5. METFORMIN [Concomitant]
  6. PRAVASTATIN SODIUM [Concomitant]
     Route: 048
  7. PREDNISONE [Concomitant]
  8. RANITIDINE [Concomitant]
     Route: 048
  9. VITAMIN D [Concomitant]
  10. ELIQUIS [Concomitant]
  11. NOVOLIN N [Concomitant]
     Dosage: 1DF: 32UNITS BEDTIME, 42UNITS DAILY
     Route: 058
  12. CELLCEPT [Concomitant]
  13. ACETAMINOPHEN [Concomitant]
  14. MENTHOL [Concomitant]
     Indication: COUGH
     Dosage: LOZENGE
  15. ONDANSETRON [Concomitant]
     Dosage: ORALLY DISINTEGRATING TABLET
  16. MIRALAX [Concomitant]

REACTIONS (2)
  - H1N1 influenza [Recovered/Resolved]
  - Pneumonia [Recovered/Resolved]
